FAERS Safety Report 4367297-8 (Version None)
Quarter: 2004Q2

REPORT INFORMATION
  Report Type: 
  Country: None (occurrence: None)
  Receive Date: 20040601
  Receipt Date: 20040524
  Transmission Date: 20050107
  Serious: Yes (Life-Threatening)
  Sender: FDA-Public Use
  Company Number: PHFR2004GB02198

PATIENT
  Age: 58 Year
  Sex: Female

DRUGS (11)
  1. DICLOFENAC [Suspect]
     Indication: PAIN
     Dosage: 50 MG, TID
     Route: 048
     Dates: start: 20040314, end: 20040406
  2. GLICLAZIDE [Concomitant]
     Dosage: 40 MG, QD
     Route: 048
  3. CALCICHEW D3 [Concomitant]
     Dosage: 2 TABLETS BD
     Route: 048
     Dates: start: 20040404, end: 20040406
  4. ALENDRONATE SODIUM [Concomitant]
     Dosage: 70 MG/WEEK
     Route: 048
  5. CO-CODAMOL [Concomitant]
     Dosage: 30/500 MG X 2 QDS
     Route: 048
     Dates: start: 20040314
  6. CEFUROXIME [Concomitant]
     Dosage: 750 MG, TID
     Route: 042
     Dates: start: 20040404
  7. LACTULOSE [Concomitant]
     Dosage: 15 ML, BID
     Route: 065
     Dates: start: 20040404
  8. RANITIDINE [Concomitant]
     Dosage: 50 MG, TID
     Route: 042
     Dates: start: 20040406, end: 20040406
  9. METRONIDAZOLE [Concomitant]
     Dosage: 500 MG, TID
     Route: 042
     Dates: start: 20040406
  10. TRAMADOL HCL [Concomitant]
     Dosage: 50 MG, TID
     Route: 065
     Dates: start: 20040404
  11. PABRINEX [Concomitant]
     Dosage: 2 PAIRS TID
     Dates: start: 20040408

REACTIONS (3)
  - BLOOD POTASSIUM INCREASED [None]
  - BLOOD UREA INCREASED [None]
  - DUODENAL ULCER PERFORATION [None]
